FAERS Safety Report 4401195-6 (Version None)
Quarter: 2004Q3

REPORT INFORMATION
  Report Type: 
  Country: None (occurrence: None)
  Receive Date: 20040907
  Receipt Date: 20031215
  Transmission Date: 20050211
  Serious: No
  Sender: FDA-Public Use
  Company Number: US-BRISTOL-MYERS SQUIBB COMPANY-12458386

PATIENT
  Age: 93 Year
  Sex: Female
  Weight: 79 kg

DRUGS (4)
  1. COUMADIN [Suspect]
     Indication: CEREBROVASCULAR ACCIDENT
     Route: 048
  2. CARDIAC MEDICATIONS [Concomitant]
  3. DIURETIC [Concomitant]
  4. POTASSIUM [Concomitant]

REACTIONS (2)
  - ANAEMIA [None]
  - FAECAL OCCULT BLOOD POSITIVE [None]
